FAERS Safety Report 23648098 (Version 1)
Quarter: 2024Q1

REPORT INFORMATION
  Report Type: Spontaneous
  Country: GR (occurrence: GR)
  Receive Date: 20240319
  Receipt Date: 20240319
  Transmission Date: 20240410
  Serious: Yes (Death, Hospitalization)
  Sender: FDA-Public Use
  Company Number: GR-GILEAD-2024-0665642

PATIENT
  Age: 61 Year
  Sex: Female

DRUGS (10)
  1. VEKLURY [Suspect]
     Active Substance: REMDESIVIR
     Indication: COVID-19
     Dosage: UNK
     Route: 042
  2. DEXAMETHASONE [Concomitant]
     Active Substance: DEXAMETHASONE
  3. BARICITINIB [Concomitant]
     Active Substance: BARICITINIB
  4. MEROPENEM [Concomitant]
     Active Substance: MEROPENEM
  5. VORICONAZOLE [Concomitant]
     Active Substance: VORICONAZOLE
  6. PIPERACILLIN AND TAZOBACTAM [Concomitant]
     Active Substance: PIPERACILLIN SODIUM\TAZOBACTAM SODIUM
  7. LINEZOLID [Concomitant]
     Active Substance: LINEZOLID
  8. COLISTIN [Concomitant]
     Active Substance: COLISTIN
  9. COTRIMOXAZOLE [Concomitant]
     Active Substance: SULFAMETHOXAZOLE\TRIMETHOPRIM
  10. TOCILIZUMAB [Concomitant]
     Active Substance: TOCILIZUMAB

REACTIONS (2)
  - COVID-19 [Fatal]
  - Drug ineffective [Unknown]
